FAERS Safety Report 11594444 (Version 2)
Quarter: 2015Q4

REPORT INFORMATION
  Report Type: Spontaneous
  Country: US (occurrence: US)
  Receive Date: 20151005
  Receipt Date: 20151005
  Transmission Date: 20160304
  Serious: No
  Sender: FDA-Public Use
  Company Number: US-TOLMAR INC.-1042574

PATIENT
  Age: 88 Year
  Sex: Female

DRUGS (1)
  1. CICLOPIROX. [Suspect]
     Active Substance: CICLOPIROX
     Indication: ONYCHOMYCOSIS
     Route: 061
     Dates: start: 2014, end: 2015

REACTIONS (3)
  - Pruritus [Unknown]
  - Product container issue [Unknown]
  - Alopecia [Unknown]

NARRATIVE: CASE EVENT DATE: 201404
